FAERS Safety Report 21191596 (Version 1)
Quarter: 2022Q3

REPORT INFORMATION
  Report Type: Spontaneous
  Country: US (occurrence: US)
  Receive Date: 20220809
  Receipt Date: 20220809
  Transmission Date: 20221026
  Serious: No
  Sender: FDA-Public Use
  Company Number: US-JOURNEY MEDICAL CORPORATION-2022JNY00653

PATIENT
  Sex: Female

DRUGS (1)
  1. AMZEEQ [Suspect]
     Active Substance: MINOCYCLINE HYDROCHLORIDE
     Indication: Acne
     Dosage: UNK
     Dates: start: 20220522

REACTIONS (2)
  - Acne [Not Recovered/Not Resolved]
  - Drug ineffective [Unknown]

NARRATIVE: CASE EVENT DATE: 20220501
